FAERS Safety Report 9877861 (Version 2)
Quarter: 2014Q1

REPORT INFORMATION
  Report Type: Spontaneous
  Country: ES (occurrence: ES)
  Receive Date: 20140206
  Receipt Date: 20140214
  Transmission Date: 20141002
  Serious: Yes (Hospitalization)
  Sender: FDA-Public Use
  Company Number: ES-AMGEN-ESPSP2014007020

PATIENT
  Sex: Female

DRUGS (2)
  1. PROLIA [Suspect]
     Indication: OSTEOPOROSIS
     Dosage: UNK UNK, QMO
     Route: 065
     Dates: start: 201211, end: 201304
  2. RISEDRONATE [Concomitant]
     Indication: OSTEOPOROSIS
     Route: 065

REACTIONS (2)
  - Temporal arteritis [Unknown]
  - Inappropriate schedule of drug administration [Unknown]
